FAERS Safety Report 10638211 (Version 1)
Quarter: 2014Q4

REPORT INFORMATION
  Report Type: Spontaneous
  Country: US (occurrence: None)
  Receive Date: 20141121
  Receipt Date: 20141121
  Transmission Date: 20150529
  Serious: No
  Sender: FDA-Public Use
  Company Number: 163-10004-14081328

PATIENT
  Age: 61 Year
  Sex: Male
  Weight: 77.11 kg

DRUGS (6)
  1. CYMBALTA [Concomitant]
     Active Substance: DULOXETINE HYDROCHLORIDE
  2. NEXIUM [Concomitant]
     Active Substance: ESOMEPRAZOLE MAGNESIUM
  3. OTEZLA [Suspect]
     Active Substance: APREMILAST
     Indication: PSORIATIC ARTHROPATHY
     Dosage: STARTER PACK, NOT PROVIDED, PO
     Route: 048
     Dates: start: 201407
  4. ENBREL [Concomitant]
     Active Substance: ETANERCEPT
  5. VOLTAREN (DICLOFENAC) [Concomitant]
  6. TRAMADOL (TRAMADOL) [Concomitant]
     Active Substance: TRAMADOL

REACTIONS (2)
  - Toothache [None]
  - Headache [None]

NARRATIVE: CASE EVENT DATE: 201407
